FAERS Safety Report 25863832 (Version 1)
Quarter: 2025Q3

REPORT INFORMATION
  Report Type: Spontaneous
  Country: EU (occurrence: EU)
  Receive Date: 20250930
  Receipt Date: 20250930
  Transmission Date: 20251021
  Serious: Yes (Death, Hospitalization, Other)
  Sender: MYLAN
  Company Number: EU-ROCHE-2513418

PATIENT
  Age: 34 Year
  Sex: Male

DRUGS (14)
  1. CYCLOSPORINE [Suspect]
     Active Substance: CYCLOSPORINE
     Indication: Graft versus host disease
  2. CYCLOSPORINE [Suspect]
     Active Substance: CYCLOSPORINE
     Indication: Bone marrow transplant
  3. MYCOPHENOLATE MOFETIL [Suspect]
     Active Substance: MYCOPHENOLATE MOFETIL
     Indication: Graft versus host disease
  4. MYCOPHENOLATE MOFETIL [Suspect]
     Active Substance: MYCOPHENOLATE MOFETIL
     Dosage: 1.5 GRAM, QD
  5. MYCOPHENOLATE MOFETIL [Suspect]
     Active Substance: MYCOPHENOLATE MOFETIL
     Dosage: 500 MILLIGRAM, QID (0.25 DAY)
  6. METHYLPREDNISOLONE [Suspect]
     Active Substance: METHYLPREDNISOLONE
     Indication: Graft versus host disease
  7. METHYLPREDNISOLONE [Suspect]
     Active Substance: METHYLPREDNISOLONE
  8. METHYLPREDNISOLONE [Suspect]
     Active Substance: METHYLPREDNISOLONE
  9. METHYLPREDNISOLONE [Suspect]
     Active Substance: METHYLPREDNISOLONE
     Dosage: 12 MILLIGRAM/KILOGRAM, QD
  10. TACROLIMUS [Suspect]
     Active Substance: TACROLIMUS
     Indication: Bone marrow transplant
  11. CIDOFOVIR [Concomitant]
     Active Substance: CIDOFOVIR
     Dosage: 10 MILLIGRAM/KILOGRAM, QD
  12. FLUDARABINE [Concomitant]
     Active Substance: FLUDARABINE PHOSPHATE
  13. MELPHALAN [Concomitant]
     Active Substance: MELPHALAN
  14. THYMOCYTE IMMUNE GLOBULIN NOS [Concomitant]
     Active Substance: THYMOCYTE IMMUNE GLOBULIN NOS

REACTIONS (14)
  - Pulmonary alveolar haemorrhage [Fatal]
  - Respiratory distress [Fatal]
  - Multiple organ dysfunction syndrome [Fatal]
  - Klebsiella sepsis [Fatal]
  - Adenoviral haemorrhagic cystitis [Recovered/Resolved]
  - Sepsis [Unknown]
  - Graft versus host disease [Unknown]
  - Acute kidney injury [Recovering/Resolving]
  - Adenovirus infection [Recovered/Resolved]
  - Blood creatinine increased [Recovering/Resolving]
  - Encephalopathy [Unknown]
  - Haematuria [Recovering/Resolving]
  - BK virus infection [Recovered/Resolved]
  - Renal failure [Recovering/Resolving]
